FAERS Safety Report 15228836 (Version 1)
Quarter: 2018Q3

REPORT INFORMATION
  Report Type: Spontaneous
  Country: US (occurrence: US)
  Receive Date: 20180706
  Receipt Date: 20180706
  Transmission Date: 20181010
  Serious: Yes (Hospitalization)
  Sender: FDA-Public Use
  Company Number: None

PATIENT
  Age: 35 Year
  Sex: Female

DRUGS (13)
  1. MONONESSA [Concomitant]
     Active Substance: ETHINYL ESTRADIOL\NORGESTIMATE
  2. QUETIAPINE. [Concomitant]
     Active Substance: QUETIAPINE
  3. SERTRALINE [Concomitant]
     Active Substance: SERTRALINE HYDROCHLORIDE
  4. PHENTOIN EX [Concomitant]
  5. RISPERDAL CONSTA [Suspect]
     Active Substance: RISPERIDONE
  6. DESVENLAFAX [Concomitant]
  7. MONTELUKAST [Concomitant]
     Active Substance: MONTELUKAST SODIUM
  8. NORGEST/ETHI [Concomitant]
  9. DIAZEPAM. [Concomitant]
     Active Substance: DIAZEPAM
  10. VENLAFAXINE [Concomitant]
     Active Substance: VENLAFAXINE HYDROCHLORIDE
  11. DIAZEPAM. [Concomitant]
     Active Substance: DIAZEPAM
  12. RISPERIDONE. [Concomitant]
     Active Substance: RISPERIDONE
  13. CARBAMAZEPIN [Concomitant]
     Active Substance: CARBAMAZEPINE

REACTIONS (4)
  - Restless legs syndrome [None]
  - Seizure [None]
  - Sleep disorder [None]
  - Drug dose omission [None]
